FAERS Safety Report 7393945-4 (Version None)
Quarter: 2011Q2

REPORT INFORMATION
  Report Type: 
  Country: None (occurrence: None)
  Receive Date: 20110405
  Receipt Date: 20100223
  Transmission Date: 20111010
  Serious: No
  Sender: FDA-Public Use
  Company Number: US-AMGEN-KDL394753

PATIENT
  Age: 68 Year

DRUGS (2)
  1. BENDAMUSTINE [Concomitant]
  2. NEULASTA [Suspect]
     Indication: CHEMOTHERAPY
     Dosage: UNK UNK, UNK

REACTIONS (2)
  - PAIN [None]
  - NON-CARDIAC CHEST PAIN [None]
